FAERS Safety Report 6992061-0 (Version None)
Quarter: 2010Q3

REPORT INFORMATION
  Report Type: 
  Country: None (occurrence: None)
  Receive Date: 20100915
  Receipt Date: 20100915
  Transmission Date: 20110219
  Serious: No
  Sender: FDA-Public Use
  Company Number: None

PATIENT
  Age: 82 Year
  Sex: Male
  Weight: 703.9826 kg

DRUGS (1)
  1. LOSARTAN POSTASSIUM [Suspect]
     Indication: HYPERTENSION
     Dosage: ONE PER DAY
     Dates: start: 20100825, end: 20100827

REACTIONS (3)
  - MEMORY IMPAIRMENT [None]
  - PRODUCT SUBSTITUTION ISSUE [None]
  - TENSION [None]
